FAERS Safety Report 7804668-9 (Version None)
Quarter: 2011Q4

REPORT INFORMATION
  Report Type: 
  Country: None (occurrence: None)
  Receive Date: 20111010
  Receipt Date: 20111004
  Transmission Date: 20120403
  Serious: Yes (Life-Threatening, Hospitalization)
  Sender: FDA-Public Use
  Company Number: FR-ABBOTT-11P-056-0860396-00

PATIENT
  Sex: Male

DRUGS (7)
  1. DOCETAXEL [Interacting]
     Indication: SQUAMOUS CELL CARCINOMA
     Dosage: 1 IN 3 WEEKS, 75 MG/M2 EACH COURSE
     Route: 042
     Dates: start: 20110721, end: 20110818
  2. REYATAZ [Interacting]
     Indication: HIV INFECTION
     Route: 048
     Dates: end: 20110818
  3. KEPPRA [Concomitant]
     Indication: EPILEPSY
     Dates: start: 20090101
  4. CARBOPLATIN [Suspect]
     Indication: SQUAMOUS CELL CARCINOMA
     Dosage: 1 IN 3 WEEKS, 300MG/M2 EACH COURSE
     Route: 042
     Dates: start: 20110721, end: 20110818
  5. TEGRETOL [Suspect]
     Indication: EPILEPSY
     Route: 048
     Dates: start: 20090101, end: 20110902
  6. TRUVADA [Suspect]
     Indication: HIV INFECTION
     Route: 048
     Dates: end: 20110818
  7. NORVIR [Interacting]
     Indication: HIV INFECTION
     Route: 048
     Dates: end: 20110818

REACTIONS (3)
  - DERMATITIS BULLOUS [None]
  - NEUTROPENIA [None]
  - SKIN EXFOLIATION [None]
